FAERS Safety Report 13494140 (Version 1)
Quarter: 2017Q2

REPORT INFORMATION
  Report Type: Spontaneous
  Country: US (occurrence: US)
  Receive Date: 20170428
  Receipt Date: 20170428
  Transmission Date: 20170830
  Serious: No
  Sender: FDA-Public Use
  Company Number: US-ALKERMES INC.-ALK-2016-002505

PATIENT
  Age: 28 Year
  Sex: Male

DRUGS (3)
  1. VIVITROL [Suspect]
     Active Substance: NALTREXONE
     Indication: DRUG USE DISORDER
     Dosage: 380 MG, QMO
     Route: 030
     Dates: start: 20160829
  2. CLONIDINE. [Concomitant]
     Active Substance: CLONIDINE
     Indication: PRODUCT USED FOR UNKNOWN INDICATION
     Dosage: UNK
  3. GABAPENTI [Concomitant]
     Indication: PRODUCT USED FOR UNKNOWN INDICATION
     Dosage: UNK
     Route: 065

REACTIONS (8)
  - Mobility decreased [Unknown]
  - Injection site reaction [Unknown]
  - Feeling abnormal [Unknown]
  - Depression [Unknown]
  - Injection site pain [Unknown]
  - Anxiety [Unknown]
  - Fatigue [Unknown]
  - Drug use disorder [Recovered/Resolved]

NARRATIVE: CASE EVENT DATE: 20160829
